FAERS Safety Report 26115644 (Version 1)
Quarter: 2025Q4

REPORT INFORMATION
  Report Type: Spontaneous
  Country: AU (occurrence: AU)
  Receive Date: 20251203
  Receipt Date: 20251203
  Transmission Date: 20260118
  Serious: Yes (Other)
  Sender: Kenvue
  Company Number: AU-KENVUE-20251110788

PATIENT

DRUGS (1)
  1. ACETAMINOPHEN [Suspect]
     Active Substance: ACETAMINOPHEN
     Indication: Patent ductus arteriosus
     Dosage: UNK
     Route: 065

REACTIONS (5)
  - Cerebral palsy [Unknown]
  - Deafness [Unknown]
  - Off label use [Unknown]
  - Visual impairment [Unknown]
  - Neurodevelopmental delay [Unknown]
